FAERS Safety Report 17700136 (Version 5)
Quarter: 2020Q2

REPORT INFORMATION
  Report Type: Spontaneous
  Country: FR (occurrence: FR)
  Receive Date: 20200423
  Receipt Date: 20200604
  Transmission Date: 20200714
  Serious: Yes (Hospitalization)
  Sender: FDA-Public Use
  Company Number: FR-JNJFOC-20200424073

PATIENT
  Age: 33 Year
  Sex: Male

DRUGS (8)
  1. RISPERDAL [Suspect]
     Active Substance: RISPERIDONE
     Indication: DEPRESSION
     Route: 065
  2. CLOPIXOL                           /00876704/ [Suspect]
     Active Substance: ZUCLOPENTHIXOL ACETATE
     Route: 065
  3. CLOPIXOL                           /00876704/ [Suspect]
     Active Substance: ZUCLOPENTHIXOL ACETATE
     Indication: DEPRESSION
     Route: 065
  4. HALDOL [Suspect]
     Active Substance: HALOPERIDOL
     Indication: DEPRESSION
     Route: 065
  5. LEPTICUR [Concomitant]
     Active Substance: TROPATEPINE HYDROCHLORIDE
     Indication: PRODUCT USED FOR UNKNOWN INDICATION
     Route: 065
  6. ARIPIPRAZOLE. [Suspect]
     Active Substance: ARIPIPRAZOLE
     Indication: DEPRESSION
     Route: 065
  7. VALIUM [Concomitant]
     Active Substance: DIAZEPAM
     Indication: PRODUCT USED FOR UNKNOWN INDICATION
     Route: 065
  8. XANAX [Concomitant]
     Active Substance: ALPRAZOLAM
     Indication: PRODUCT USED FOR UNKNOWN INDICATION
     Route: 065

REACTIONS (19)
  - Anger [Not Recovered/Not Resolved]
  - Lethargy [Not Recovered/Not Resolved]
  - Fatigue [Unknown]
  - Visual impairment [Not Recovered/Not Resolved]
  - Eye disorder [Unknown]
  - Emotional distress [Not Recovered/Not Resolved]
  - Amnesia [Not Recovered/Not Resolved]
  - Daydreaming [Not Recovered/Not Resolved]
  - Off label use [Unknown]
  - Photopsia [Not Recovered/Not Resolved]
  - Dry eye [Not Recovered/Not Resolved]
  - Hospitalisation [Unknown]
  - Aggression [Not Recovered/Not Resolved]
  - Excessive eye blinking [Unknown]
  - Weight increased [Not Recovered/Not Resolved]
  - Asthenia [Not Recovered/Not Resolved]
  - Hypersomnia [Not Recovered/Not Resolved]
  - Product use in unapproved indication [Unknown]
  - Pain [Unknown]
